FAERS Safety Report 7048936-X (Version None)
Quarter: 2010Q4

REPORT INFORMATION
  Report Type: 
  Country: None (occurrence: None)
  Receive Date: 20101018
  Receipt Date: 20101012
  Transmission Date: 20110411
  Serious: Yes (Death, Hospitalization)
  Sender: FDA-Public Use
  Company Number: PHHY2010NZ51314

PATIENT
  Sex: Female

DRUGS (5)
  1. CLOZARIL [Suspect]
     Dosage: 300 MG, UNK
     Dates: end: 20100608
  2. VALPROATE SODIUM [Concomitant]
     Dosage: 800 MG, QD
     Route: 048
  3. CLOZAPINE [Concomitant]
     Dosage: 800 MG NOCTE
     Route: 048
  4. OLANZAPINE [Concomitant]
     Dosage: 5 MG NOCTE
     Route: 048
  5. PARACETAMOL [Concomitant]
     Dosage: 1 G QIDS

REACTIONS (9)
  - BLOOD ALBUMIN DECREASED [None]
  - BLOOD CHLORIDE INCREASED [None]
  - BLOOD POTASSIUM DECREASED [None]
  - CARDIAC DISORDER [None]
  - CIRCULATORY COLLAPSE [None]
  - ORTHOSTATIC HYPOTENSION [None]
  - URINE ANALYSIS ABNORMAL [None]
  - VOMITING [None]
  - X-RAY ABNORMAL [None]
